FAERS Safety Report 17172669 (Version 3)
Quarter: 2020Q1

REPORT INFORMATION
  Report Type: Spontaneous
  Country: MX (occurrence: MX)
  Receive Date: 20191218
  Receipt Date: 20200123
  Transmission Date: 20200409
  Serious: Yes (Hospitalization)
  Sender: FDA-Public Use
  Company Number: MX-B.I. PHARMACEUTICALS,INC./RIDGEFIELD-2019-BI-120532

PATIENT
  Sex: Male

DRUGS (5)
  1. TRAYENTA DUO [Suspect]
     Active Substance: LINAGLIPTIN\METFORMIN HYDROCHLORIDE
     Indication: DIABETES MELLITUS
     Dosage: 2.5/850 MILLIGRAM
     Route: 065
     Dates: end: 201903
  2. HUMALOG MIX75/25 [Concomitant]
     Active Substance: INSULIN LISPRO
     Indication: DIABETES MELLITUS
     Dosage: HUMALOG MIX CART 25 (KWIKPEN)
     Route: 058
  3. COMBODART [Concomitant]
     Active Substance: DUTASTERIDE\TAMSULOSIN
     Indication: PRODUCT USED FOR UNKNOWN INDICATION
     Route: 065
  4. CLONAZEPAM. [Concomitant]
     Active Substance: CLONAZEPAM
     Indication: PRODUCT USED FOR UNKNOWN INDICATION
     Route: 065
  5. JARDIANZ DUO [Suspect]
     Active Substance: EMPAGLIFLOZIN\METFORMIN HYDROCHLORIDE
     Indication: DIABETES MELLITUS
     Dosage: 12.5/850 MILLIGRAM
     Route: 065
     Dates: start: 201903

REACTIONS (11)
  - Product quality issue [Unknown]
  - Hypoaesthesia [Unknown]
  - Tooth disorder [Unknown]
  - Arthropathy [Unknown]
  - Decreased appetite [Unknown]
  - Drug ineffective [Unknown]
  - Spinal operation [Unknown]
  - Insomnia [Unknown]
  - Poor peripheral circulation [Unknown]
  - Gait inability [Unknown]
  - Weight decreased [Unknown]
